FAERS Safety Report 5024873-7 (Version None)
Quarter: 2006Q2

REPORT INFORMATION
  Report Type: 
  Country: None (occurrence: None)
  Receive Date: 20060607
  Receipt Date: 20060525
  Transmission Date: 20061013
  Serious: Yes (Death, Hospitalization, Other)
  Sender: FDA-Public Use
  Company Number: JP200603000658

PATIENT
  Age: 63 Year
  Sex: Male
  Weight: 54.3 kg

DRUGS (1)
  1. GEMZAR [Suspect]
     Indication: PANCREATIC CARCINOMA
     Dosage: 1580 MG, OTHER, INTRAVENOUS
     Route: 042
     Dates: start: 20040728, end: 20041022

REACTIONS (8)
  - CEREBRAL ISCHAEMIA [None]
  - DISORIENTATION [None]
  - EPILEPSY [None]
  - HYPERAMMONAEMIA [None]
  - LACUNAR INFARCTION [None]
  - MALIGNANT ASCITES [None]
  - MULTI-ORGAN FAILURE [None]
  - OEDEMA [None]
